FAERS Safety Report 4518707-4 (Version None)
Quarter: 2004Q4

REPORT INFORMATION
  Report Type: 
  Country: None (occurrence: None)
  Receive Date: 20041201
  Receipt Date: 20041115
  Transmission Date: 20050328
  Serious: No
  Sender: FDA-Public Use
  Company Number: 9304

PATIENT
  Age: 72 Year
  Sex: Female

DRUGS (7)
  1. METHOTREXATE [Suspect]
     Indication: RHEUMATOID ARTHRITIS
     Dosage: 10 MG WEEKLY
  2. ETANERCEPT [Suspect]
     Indication: RHEUMATOID ARTHRITIS
     Dosage: 25 MG 2/WK, SC
     Route: 058
     Dates: start: 20031218, end: 20040810
  3. LEFLUNOMIDE [Suspect]
     Indication: RHEUMATOID ARTHRITIS
     Dosage: 10 MG
  4. ROFECOXIB [Concomitant]
  5. GLUCOSAMINE [Concomitant]
  6. AMLODIPINE [Concomitant]
  7. CARVEDILOL [Concomitant]

REACTIONS (2)
  - PNEUMONIA KLEBSIELLA [None]
  - PULMONARY TUBERCULOSIS [None]
